FAERS Safety Report 15951342 (Version 2)
Quarter: 2019Q1

REPORT INFORMATION
  Report Type: Spontaneous
  Country: FR (occurrence: FR)
  Receive Date: 20190212
  Receipt Date: 20190219
  Transmission Date: 20190417
  Serious: Yes (Hospitalization)
  Sender: FDA-Public Use
  Company Number: FR-INDIVIOR LIMITED-INDV-117603-2019

PATIENT
  Age: 45 Year
  Sex: Female

DRUGS (4)
  1. NICOTIANA TABACUM [Suspect]
     Active Substance: TOBACCO LEAF
     Indication: TOBACCO USER
     Dosage: 10 CIGARETTES/DAY
     Route: 055
  2. SUBUTEX [Suspect]
     Active Substance: BUPRENORPHINE HYDROCHLORIDE
     Dosage: 4MG, PER DAY
     Route: 065
  3. SUBUTEX [Suspect]
     Active Substance: BUPRENORPHINE HYDROCHLORIDE
     Dosage: 3MG, PER DAY
     Route: 065
  4. SUBUTEX [Suspect]
     Active Substance: BUPRENORPHINE HYDROCHLORIDE
     Indication: PRODUCT USED FOR UNKNOWN INDICATION
     Dosage: 2 MG WHEN SHE WAKES, SNIFFS 2 MG AT NIGHT
     Route: 045

REACTIONS (4)
  - Congestive cardiomyopathy [Not Recovered/Not Resolved]
  - Drug abuse [Not Recovered/Not Resolved]
  - Intentional product use issue [Unknown]
  - Stress cardiomyopathy [Not Recovered/Not Resolved]

NARRATIVE: CASE EVENT DATE: 20190107
